FAERS Safety Report 9989671 (Version 1)
Quarter: 2014Q1

REPORT INFORMATION
  Report Type: Report from Study
  Country: US (occurrence: US)
  Receive Date: 20140310
  Receipt Date: 20140310
  Transmission Date: 20141002
  Serious: No
  Sender: FDA-Public Use
  Company Number: US-ABBVIE-13P-163-1133638-00

PATIENT
  Sex: Male
  Weight: 77.18 kg

DRUGS (9)
  1. HUMIRA [Suspect]
     Indication: PSORIATIC ARTHROPATHY
     Dates: start: 2010, end: 2011
  2. HUMIRA [Suspect]
     Indication: PSORIASIS
     Dates: start: 2011
  3. CALCIUM [Concomitant]
     Indication: MINERAL SUPPLEMENTATION
  4. VITAMIN D3 [Concomitant]
     Indication: VITAMIN SUPPLEMENTATION
  5. VITAMIN B COMPLEX [Concomitant]
     Indication: VITAMIN SUPPLEMENTATION
  6. PROBIOTICS [Concomitant]
     Indication: VITAMIN SUPPLEMENTATION
  7. PREGNENOLONE [Concomitant]
     Indication: HORMONE LEVEL ABNORMAL
  8. DEHYDROEPIANDROSTERONE [Concomitant]
     Indication: DEHYDROEPIANDROSTERONE DECREASED
  9. MULTIVITAMIN [Concomitant]
     Indication: VITAMIN SUPPLEMENTATION

REACTIONS (2)
  - Anxiety [Recovering/Resolving]
  - Affect lability [Recovering/Resolving]
